FAERS Safety Report 10975373 (Version 2)
Quarter: 2015Q2

REPORT INFORMATION
  Report Type: Spontaneous
  Country: JP (occurrence: JP)
  Receive Date: 20150401
  Receipt Date: 20150417
  Transmission Date: 20150821
  Serious: Yes (Hospitalization)
  Sender: FDA-Public Use
  Company Number: JP-GLAXOSMITHKLINE-JP2015JPN005448

PATIENT
  Age: 39 Year
  Sex: Female

DRUGS (9)
  1. LAMICTAL [Suspect]
     Active Substance: LAMOTRIGINE
     Indication: AFFECT LABILITY
     Dosage: 25 MG, QOD
     Route: 048
     Dates: start: 20141010, end: 20141022
  2. LAMICTAL [Suspect]
     Active Substance: LAMOTRIGINE
     Dosage: UNK UNK, BID
     Route: 048
     Dates: start: 20150126
  3. LEVOTOMIN [Concomitant]
     Active Substance: LEVOMEPROMAZINE
     Dosage: 25 MG, QD
  4. LAMICTAL [Suspect]
     Active Substance: LAMOTRIGINE
     Dosage: 25 MG, QD
     Route: 048
     Dates: start: 20141023, end: 20141103
  5. PYRETHIA [Concomitant]
     Active Substance: PROMETHAZINE HYDROCHLORIDE
     Dosage: 25 MG, TID
  6. LAMICTAL [Suspect]
     Active Substance: LAMOTRIGINE
     Dosage: 50 MG, QD
     Route: 048
     Dates: start: 20141104, end: 20150125
  7. NITRAZEPAM [Concomitant]
     Active Substance: NITRAZEPAM
     Dosage: 10 MG, QD
  8. ESTAZOLAM. [Concomitant]
     Active Substance: ESTAZOLAM
     Dosage: 2 MG, QD
  9. TRYPTANOL [Concomitant]
     Active Substance: AMITRIPTYLINE
     Dosage: 25 MG, TID

REACTIONS (2)
  - Epistaxis [Recovering/Resolving]
  - Psychiatric symptom [Not Recovered/Not Resolved]

NARRATIVE: CASE EVENT DATE: 201412
